FAERS Safety Report 5213766-8 (Version None)
Quarter: 2007Q1

REPORT INFORMATION
  Report Type: 
  Country: None (occurrence: None)
  Receive Date: 20070119
  Receipt Date: 20070109
  Transmission Date: 20070707
  Serious: Yes (Hospitalization)
  Sender: FDA-Public Use
  Company Number: US-PFIZER INC-2006149424

PATIENT
  Sex: Male
  Weight: 82.6 kg

DRUGS (12)
  1. SUTENT [Suspect]
     Indication: NON-SMALL CELL LUNG CANCER
  2. TAXOL [Suspect]
     Indication: NON-SMALL CELL LUNG CANCER
     Route: 042
  3. CARBOPLATIN [Suspect]
     Indication: NON-SMALL CELL LUNG CANCER
     Dosage: TEXT:AUC 6
     Route: 042
  4. DECADRON [Concomitant]
     Route: 048
  5. COMPAZINE [Concomitant]
     Route: 048
  6. PROMETHAZINE HCL [Concomitant]
     Route: 048
  7. XANAX [Concomitant]
     Route: 048
  8. OXYCODONE HCL [Concomitant]
     Route: 048
  9. LORTAB [Concomitant]
     Route: 048
  10. COREG [Concomitant]
     Route: 048
  11. LISINOPRIL [Concomitant]
     Route: 048
  12. AMITRIPTYLINE HCL [Concomitant]
     Route: 048

REACTIONS (3)
  - DEHYDRATION [None]
  - HYPOTENSION [None]
  - PNEUMONIA [None]
